FAERS Safety Report 7344218-7 (Version None)
Quarter: 2011Q1

REPORT INFORMATION
  Report Type: 
  Country: None (occurrence: None)
  Receive Date: 20110310
  Receipt Date: 20100825
  Transmission Date: 20110831
  Serious: No
  Sender: FDA-Public Use
  Company Number: A0877629A

PATIENT
  Age: 55 Year
  Sex: Female

DRUGS (2)
  1. TARGET ORIGINAL 4MG [Suspect]
  2. TARGET ORIGINAL 2MG [Suspect]

REACTIONS (1)
  - INTENTIONAL DRUG MISUSE [None]
